FAERS Safety Report 12627654 (Version 2)
Quarter: 2016Q3

REPORT INFORMATION
  Report Type: Spontaneous
  Country: CA (occurrence: CA)
  Receive Date: 20160805
  Receipt Date: 20160930
  Transmission Date: 20161109
  Serious: Yes (Other)
  Sender: FDA-Public Use
  Company Number: PHHY2016CA104776

PATIENT
  Age: 59 Year
  Sex: Female

DRUGS (2)
  1. CIPROFLOXACIN SANDOZ [Suspect]
     Active Substance: CIPROFLOXACIN
     Indication: PYELONEPHRITIS
     Dosage: 500 MG, BID
     Route: 065
     Dates: end: 201607
  2. GAVISCON                           /01409501/ [Suspect]
     Active Substance: ALGINIC ACID\ALUMINUM HYDROXIDE
     Indication: PRODUCT USED FOR UNKNOWN INDICATION
     Route: 065

REACTIONS (2)
  - Vaginal infection [Recovered/Resolved]
  - Vaginal haemorrhage [Recovered/Resolved]
